FAERS Safety Report 12959489 (Version 1)
Quarter: 2016Q4

REPORT INFORMATION
  Report Type: Spontaneous
  Country: US (occurrence: US)
  Receive Date: 20161118
  Receipt Date: 20161118
  Transmission Date: 20170207
  Serious: Yes (Hospitalization)
  Sender: FDA-Public Use
  Company Number: None

PATIENT
  Age: 75 Year
  Sex: Male
  Weight: 77.3 kg

DRUGS (3)
  1. METFORMIN [Concomitant]
     Active Substance: METFORMIN HYDROCHLORIDE
  2. 5-FLUOROURACIL [Suspect]
     Active Substance: FLUOROURACIL
     Dosage: OTHER FREQUENCY:EVERY 2 WEEKS;?
     Route: 042
     Dates: start: 20161107, end: 20161109
  3. OXALIPLATIN. [Suspect]
     Active Substance: OXALIPLATIN
     Indication: PANCREATIC CARCINOMA METASTATIC
     Dosage: OTHER FREQUENCY:EVERY 2 WEEKS;?
     Route: 042
     Dates: start: 20161107, end: 20161107

REACTIONS (5)
  - Candida infection [None]
  - Acute kidney injury [None]
  - Oropharyngeal pain [None]
  - Mucosal inflammation [None]
  - Renal impairment [None]

NARRATIVE: CASE EVENT DATE: 20161118
